FAERS Safety Report 22536551 (Version 1)
Quarter: 2023Q2

REPORT INFORMATION
  Report Type: Report from Study
  Country: MX (occurrence: None)
  Receive Date: 20230608
  Receipt Date: 20230608
  Transmission Date: 20230722
  Serious: Yes (Death, Other)
  Sender: FDA-Public Use
  Company Number: 2023A073927

PATIENT
  Age: 22746 Day
  Sex: Female
  Weight: 59 kg

DRUGS (1)
  1. TAGRISSO [Suspect]
     Active Substance: OSIMERTINIB
     Indication: Lung neoplasm malignant
     Route: 048
     Dates: start: 20210302, end: 20230602

REACTIONS (3)
  - Death [Fatal]
  - Bone disorder [Unknown]
  - Infection [Unknown]

NARRATIVE: CASE EVENT DATE: 20230314
